FAERS Safety Report 25578231 (Version 1)
Quarter: 2025Q3

REPORT INFORMATION
  Report Type: Spontaneous
  Country: EU (occurrence: EU)
  Receive Date: 20250718
  Receipt Date: 20250718
  Transmission Date: 20251020
  Serious: Yes (Other)
  Sender: NOVARTIS
  Company Number: EU-002147023-NVSC2025DE114149

PATIENT
  Sex: Female

DRUGS (1)
  1. FEMARA [Suspect]
     Active Substance: LETROZOLE
     Indication: Breast cancer
     Route: 065
     Dates: start: 2023

REACTIONS (8)
  - Urethral stenosis [Unknown]
  - Spinal stenosis [Unknown]
  - Osteoporosis [Unknown]
  - Depression [Unknown]
  - Haemorrhage [Unknown]
  - Abdominal pain lower [Unknown]
  - Pelvic fluid collection [Unknown]
  - Hepatic cyst [Unknown]

NARRATIVE: CASE EVENT DATE: 20240101
